FAERS Safety Report 14111335 (Version 1)
Quarter: 2017Q4

REPORT INFORMATION
  Report Type: Report from Study
  Country: US (occurrence: US)
  Receive Date: 20171020
  Receipt Date: 20171020
  Transmission Date: 20180321
  Serious: Yes (Other)
  Sender: FDA-Public Use
  Company Number: US-SAOL THERAPEUTICS-2017SAO01595

PATIENT
  Sex: Male

DRUGS (22)
  1. BUPIVACAINE. [Suspect]
     Active Substance: BUPIVACAINE
     Dosage: 13.742 MG, \DAY
     Route: 037
     Dates: start: 20170427, end: 20170608
  2. COMPOUNDED BACLOFEN [Suspect]
     Active Substance: BACLOFEN
     Dosage: 112.99 ?G, \DAY; MAX DOSE
     Route: 037
     Dates: start: 20170608
  3. DILAUDID [Suspect]
     Active Substance: HYDROMORPHONE HYDROCHLORIDE
     Dosage: 2.748 MG, \DAY
     Route: 037
     Dates: start: 20170427, end: 20170608
  4. BUPIVACAINE. [Suspect]
     Active Substance: BUPIVACAINE
     Dosage: 11.745 MG, \DAY
     Route: 037
     Dates: start: 20161020
  5. DILAUDID [Suspect]
     Active Substance: HYDROMORPHONE HYDROCHLORIDE
     Dosage: 4.312 MG, \DAY; MAX DOSE
     Route: 037
     Dates: start: 20170427, end: 20170608
  6. DILAUDID [Suspect]
     Active Substance: HYDROMORPHONE HYDROCHLORIDE
     Dosage: 2.499 MG, \DAY
     Route: 037
     Dates: start: 20170608
  7. DILAUDID [Suspect]
     Active Substance: HYDROMORPHONE HYDROCHLORIDE
     Dosage: 3.766 MG, \DAY; MAX DOSE
     Route: 037
     Dates: start: 20170608
  8. DILAUDID [Suspect]
     Active Substance: HYDROMORPHONE HYDROCHLORIDE
     Dosage: 3.664 MG, \DAY; MAX DOSE
     Route: 037
     Dates: start: 20161020
  9. BUPIVACAINE. [Suspect]
     Active Substance: BUPIVACAINE
     Dosage: 12.496 MG, \DAY; MAX DOSE
     Route: 037
     Dates: start: 20170427, end: 20170608
  10. BUPIVACAINE. [Suspect]
     Active Substance: BUPIVACAINE
     Dosage: 18.831 MG, \DAY; MAX DOSE
     Route: 037
     Dates: start: 20170608
  11. BUPIVACAINE. [Suspect]
     Active Substance: BUPIVACAINE
     Dosage: 11.514, \DAY
     Route: 037
     Dates: start: 20160913, end: 20161020
  12. COMPOUNDED BACLOFEN [Suspect]
     Active Substance: BACLOFEN
     Dosage: 70.47 ?G, \DAY
     Route: 037
     Dates: start: 20161020
  13. COMPOUNDED BACLOFEN [Suspect]
     Active Substance: BACLOFEN
     Dosage: 129.37 ?G, \DAY; MAX DOSE
     Route: 037
     Dates: start: 20170427, end: 20170608
  14. COMPOUNDED BACLOFEN [Suspect]
     Active Substance: BACLOFEN
     Dosage: 74.98 ?G, \DAY
     Route: 037
     Dates: start: 20170608
  15. DILAUDID [Suspect]
     Active Substance: HYDROMORPHONE HYDROCHLORIDE
     Dosage: 2.3489 MG, \DAY
     Route: 037
     Dates: start: 20161020, end: 20161020
  16. DILAUDID [Suspect]
     Active Substance: HYDROMORPHONE HYDROCHLORIDE
     Dosage: 3.618 MG, \DAY; MAX DOSE
     Route: 037
     Dates: start: 20160913, end: 20161020
  17. BUPIVACAINE. [Suspect]
     Active Substance: BUPIVACAINE
     Dosage: 18.094 MG, \DAY; MAX DOSE
     Route: 037
     Dates: start: 20160913, end: 20161020
  18. BUPIVACAINE. [Suspect]
     Active Substance: BUPIVACAINE
     Dosage: 18.322 MG, \DAY; MAX DOSE
     Route: 037
     Dates: start: 20161020
  19. COMPOUNDED BACLOFEN [Suspect]
     Active Substance: BACLOFEN
     Dosage: 109.93 ?G, \DAY; MAX DOSE
     Route: 037
     Dates: start: 20161020
  20. COMPOUNDED BACLOFEN [Suspect]
     Active Substance: BACLOFEN
     Dosage: 82.45 ?G, \DAY
     Route: 037
     Dates: start: 20170427, end: 20170608
  21. DILAUDID [Suspect]
     Active Substance: HYDROMORPHONE HYDROCHLORIDE
     Dosage: 2.3028 MG, \DAY
     Route: 037
     Dates: start: 20160913, end: 20161020
  22. BUPIVACAINE. [Suspect]
     Active Substance: BUPIVACAINE
     Dosage: 12.496 MG, \DAY
     Route: 037
     Dates: start: 20170608

REACTIONS (5)
  - Narcolepsy [Recovered/Resolved]
  - Muscular weakness [Recovered/Resolved]
  - Balance disorder [Recovered/Resolved]
  - Fatigue [Recovered/Resolved]
  - Lethargy [Recovered/Resolved]

NARRATIVE: CASE EVENT DATE: 20161020
